FAERS Safety Report 19724850 (Version 2)
Quarter: 2021Q3

REPORT INFORMATION
  Report Type: Other
  Country: NL (occurrence: NL)
  Receive Date: 20210819
  Receipt Date: 20210823
  Transmission Date: 20211014
  Serious: Yes (Other)
  Sender: FDA-Public Use
  Company Number: NL-ROCHE-2891074

PATIENT

DRUGS (4)
  1. CAPECITABINE. [Suspect]
     Active Substance: CAPECITABINE
     Indication: BLADDER CANCER
     Route: 065
  2. MITOMYCIN C [Suspect]
     Active Substance: MITOMYCIN
     Indication: BLADDER CANCER
     Route: 042
  3. NIVOLUMAB [Suspect]
     Active Substance: NIVOLUMAB
     Indication: BLADDER CANCER
     Route: 042
  4. IPILIMUMAB [Suspect]
     Active Substance: IPILIMUMAB
     Indication: BLADDER CANCER
     Route: 042

REACTIONS (2)
  - Thrombocytopenia [Unknown]
  - Cardiac arrest [Unknown]
